FAERS Safety Report 5506104-4 (Version None)
Quarter: 2007Q4

REPORT INFORMATION
  Report Type: 
  Country: None (occurrence: None)
  Receive Date: 20071105
  Receipt Date: 20071031
  Transmission Date: 20080405
  Serious: Yes (Life-Threatening, Hospitalization, Disabling, Other)
  Sender: FDA-Public Use
  Company Number: GB-BRISTOL-MYERS SQUIBB COMPANY-13844618

PATIENT
  Age: 10 Year
  Sex: Male
  Weight: 32 kg

DRUGS (3)
  1. SUSTIVA [Suspect]
     Indication: HIV INFECTION
     Route: 048
     Dates: start: 20070302, end: 20070701
  2. ZIDOVUDINE [Concomitant]
     Route: 048
     Dates: start: 20070330, end: 20070701
  3. LAMIVUDINE [Concomitant]
     Route: 048
     Dates: start: 20070330, end: 20070701

REACTIONS (6)
  - JAUNDICE [None]
  - LIVER DISORDER [None]
  - LIVER FUNCTION TEST ABNORMAL [None]
  - LIVER TRANSPLANT [None]
  - OCULAR ICTERUS [None]
  - URINE COLOUR ABNORMAL [None]
